FAERS Safety Report 17916071 (Version 1)
Quarter: 2020Q3

REPORT INFORMATION
  Report Type: Report from Study
  Country: CO (occurrence: CO)
  Receive Date: 20200619
  Receipt Date: 20200619
  Transmission Date: 20201105
  Serious: Yes (Other)
  Sender: FDA-Public Use
  Company Number: NVSC2020CO098003

PATIENT
  Sex: Female
  Weight: 1859.4 kg

DRUGS (4)
  1. COSENTYX [Suspect]
     Active Substance: SECUKINUMAB
     Indication: EXPOSURE DURING PREGNANCY
     Dosage: UNK, (MATERNAL DOSE)
     Route: 065
     Dates: start: 201805
  2. SYMBICORT [Concomitant]
     Active Substance: BUDESONIDE\FORMOTEROL FUMARATE DIHYDRATE
     Indication: EXPOSURE DURING PREGNANCY
     Dosage: UNK, (MATERNAL DOSE)
     Route: 065
  3. XOLAIR [Suspect]
     Active Substance: OMALIZUMAB
     Indication: EXPOSURE DURING PREGNANCY
     Dosage: UNK, (MATERNAL DOSE)
     Route: 065
     Dates: start: 201805, end: 201906
  4. MONTELUKAST [Suspect]
     Active Substance: MONTELUKAST SODIUM
     Indication: EXPOSURE DURING PREGNANCY
     Dosage: UNK, (MATERNAL DOSE)
     Route: 065

REACTIONS (1)
  - Premature baby [Unknown]
